FAERS Safety Report 14039184 (Version 2)
Quarter: 2017Q4

REPORT INFORMATION
  Report Type: Spontaneous
  Country: US (occurrence: US)
  Receive Date: 20171004
  Receipt Date: 20171110
  Transmission Date: 20180321
  Serious: No
  Sender: FDA-Public Use
  Company Number: PHEH2017US031336

PATIENT
  Age: 73 Year
  Sex: Male
  Weight: 85 kg

DRUGS (1)
  1. ENTRESTO [Suspect]
     Active Substance: SACUBITRIL\VALSARTAN
     Indication: CARDIAC FAILURE
     Dosage: 100 MG, BID
     Route: 048
     Dates: start: 20170727

REACTIONS (7)
  - Somnolence [Unknown]
  - Thirst [Unknown]
  - Arthralgia [Unknown]
  - Urine output decreased [Unknown]
  - Blood glucose increased [Unknown]
  - Depressed mood [Unknown]
  - Myalgia [Unknown]

NARRATIVE: CASE EVENT DATE: 20170727
